FAERS Safety Report 6449240-0 (Version None)
Quarter: 2009Q4

REPORT INFORMATION
  Report Type: 
  Country: None (occurrence: None)
  Receive Date: 20091113
  Receipt Date: 20090112
  Transmission Date: 20100525
  Serious: Yes (Other)
  Sender: FDA-Public Use
  Company Number: APP200900019

PATIENT
  Age: 19 Year
  Sex: Female

DRUGS (4)
  1. NAROPIN [Suspect]
     Indication: EPIDURAL ANAESTHESIA
     Dosage: EPIDURAL
     Route: 008
     Dates: start: 20081203, end: 20081203
  2. NAROPIN [Suspect]
  3. PITOCIN [Concomitant]
  4. VITAMIN TAB [Concomitant]

REACTIONS (2)
  - DRUG EXPOSURE DURING PREGNANCY [None]
  - DRUG INEFFECTIVE [None]
